FAERS Safety Report 10524427 (Version 1)
Quarter: 2014Q4

REPORT INFORMATION
  Report Type: Spontaneous
  Country: US (occurrence: US)
  Receive Date: 20141017
  Receipt Date: 20141017
  Transmission Date: 20150528
  Serious: No
  Sender: FDA-Public Use
  Company Number: US-009507513-1410USA007236

PATIENT
  Age: 58 Year
  Sex: Female

DRUGS (1)
  1. SINGULAIR [Suspect]
     Active Substance: MONTELUKAST SODIUM
     Indication: HYPERSENSITIVITY
     Dosage: 10 MG/ 1 TABLET EVERYDAY
     Route: 048
     Dates: start: 20140922, end: 20140930

REACTIONS (5)
  - Swelling [Recovered/Resolved]
  - Dyspnoea [Recovered/Resolved]
  - Breast inflammation [Recovered/Resolved]
  - Influenza like illness [Recovered/Resolved]
  - Feeling hot [Recovered/Resolved]

NARRATIVE: CASE EVENT DATE: 20140930
